FAERS Safety Report 5920096-5 (Version None)
Quarter: 2008Q4

REPORT INFORMATION
  Report Type: 
  Country: None (occurrence: None)
  Receive Date: 20081016
  Receipt Date: 20081013
  Transmission Date: 20090506
  Serious: Yes (Disabling)
  Sender: FDA-Public Use
  Company Number: GB-RANBAXY-2008RR-18627

PATIENT
  Age: 82 Year
  Sex: Male

DRUGS (3)
  1. METFORMIN HYDROCHLORIDE [Suspect]
     Indication: DIABETES MELLITUS
     Dosage: 1 G, BID
     Route: 048
     Dates: end: 20080501
  2. BRONCHODILATOR [Concomitant]
     Dosage: UNK
     Route: 055
  3. INSULIN [Concomitant]
     Route: 058

REACTIONS (1)
  - DYSPNOEA [None]
